FAERS Safety Report 23785916 (Version 1)
Quarter: 2024Q2

REPORT INFORMATION
  Report Type: Report from Study
  Country: US (occurrence: US)
  Receive Date: 20240426
  Receipt Date: 20240426
  Transmission Date: 20240716
  Serious: Yes (Death)
  Sender: FDA-Public Use
  Company Number: US-ABBVIE-5733794

PATIENT
  Age: 51 Year
  Sex: Male

DRUGS (1)
  1. VENCLEXTA [Suspect]
     Active Substance: VENETOCLAX
     Indication: Mantle cell lymphoma
     Dosage: TAKE 4 TABLETS BY MOUTH ONCE UP TO DATE WITH MEAL WITH GLASS OF?WATER FULL
     Route: 048
     Dates: start: 20231219, end: 20240417

REACTIONS (1)
  - Death [Fatal]

NARRATIVE: CASE EVENT DATE: 20240417
